FAERS Safety Report 13571033 (Version 1)
Quarter: 2017Q2

REPORT INFORMATION
  Report Type: Spontaneous
  Country: AU (occurrence: AU)
  Receive Date: 20170523
  Receipt Date: 20170523
  Transmission Date: 20170830
  Serious: Yes (Other)
  Sender: FDA-Public Use
  Company Number: AU-ROCHE-1937622

PATIENT
  Age: 22 Year
  Sex: Female

DRUGS (2)
  1. HEPARIN [Concomitant]
     Active Substance: HEPARIN SODIUM
     Route: 042
  2. METALYSE [Suspect]
     Active Substance: TENECTEPLASE
     Indication: THROMBOLYSIS
     Route: 065

REACTIONS (5)
  - Vena cava thrombosis [Unknown]
  - Deep vein thrombosis [Unknown]
  - Abdominal distension [Unknown]
  - Coagulopathy [Unknown]
  - Organ failure [Unknown]
